FAERS Safety Report 13639619 (Version 1)
Quarter: 2017Q2

REPORT INFORMATION
  Report Type: Spontaneous
  Country: US (occurrence: US)
  Receive Date: 20170609
  Receipt Date: 20170609
  Transmission Date: 20170830
  Serious: No
  Sender: FDA-Public Use
  Company Number: US-ROCHE-1508678

PATIENT
  Sex: Female

DRUGS (7)
  1. CLONAZEPAM (TEVA PHARM) [Suspect]
     Active Substance: CLONAZEPAM
     Indication: ANXIETY
     Dosage: TEVA GENERIC KLONOPIN
     Route: 065
  2. KLONOPIN [Suspect]
     Active Substance: CLONAZEPAM
     Indication: ANXIETY
     Dosage: ABOUT 20 YEARS
     Route: 065
  3. ATIVAN [Concomitant]
     Active Substance: LORAZEPAM
  4. KLONOPIN [Suspect]
     Active Substance: CLONAZEPAM
     Indication: SLEEP DISORDER
     Dosage: IN THE AM
     Route: 065
  5. KLONOPIN [Suspect]
     Active Substance: CLONAZEPAM
     Dosage: AT NIGHT
     Route: 065
  6. CLONAZEPAM (TEVA PHARM) [Suspect]
     Active Substance: CLONAZEPAM
     Indication: SLEEP DISORDER
  7. KLONOPIN [Suspect]
     Active Substance: CLONAZEPAM
     Route: 065

REACTIONS (5)
  - Feeling jittery [Unknown]
  - Paradoxical drug reaction [Recovered/Resolved]
  - Nocturia [Unknown]
  - Insomnia [Not Recovered/Not Resolved]
  - Product quality issue [Unknown]
